FAERS Safety Report 4542138-4 (Version None)
Quarter: 2004Q4

REPORT INFORMATION
  Report Type: 
  Country: None (occurrence: None)
  Receive Date: 20041227
  Receipt Date: 20041213
  Transmission Date: 20050328
  Serious: Yes (Death)
  Sender: FDA-Public Use
  Company Number: MK200412-0300-1

PATIENT
  Age: 57 Year
  Sex: Female

DRUGS (7)
  1. ANAFRANIL [Suspect]
     Indication: DEPRESSION
  2. AMISULPRIDE [Concomitant]
  3. CLOZAPINE [Concomitant]
  4. LITHIUM CARBONATE [Concomitant]
  5. OXYBUTYNIN [Concomitant]
  6. PANTOPRAZOLE SODIUM [Concomitant]
  7. VALPROATE SODIUM [Concomitant]

REACTIONS (7)
  - CARDIAC ARREST [None]
  - CIRCULATORY COLLAPSE [None]
  - DRUG LEVEL ABOVE THERAPEUTIC [None]
  - DYSPNOEA [None]
  - FATIGUE [None]
  - OVERDOSE [None]
  - PALLOR [None]
